FAERS Safety Report 6511394-5 (Version None)
Quarter: 2009Q4

REPORT INFORMATION
  Report Type: 
  Country: None (occurrence: None)
  Receive Date: 20091222
  Receipt Date: 20090310
  Transmission Date: 20100525
  Serious: No
  Sender: FDA-Public Use
  Company Number: US-ASTRAZENECA-2009UW06343

PATIENT
  Age: 79 Year
  Sex: Male
  Weight: 93.4 kg

DRUGS (7)
  1. CRESTOR [Suspect]
     Route: 048
     Dates: start: 20090224
  2. BETAGAN [Concomitant]
  3. PILOCARPINE HYDROCHLORIDE [Concomitant]
  4. DIAMOX SRC [Concomitant]
  5. ALPHAGAN [Concomitant]
  6. PRINIVIL [Concomitant]
  7. PRILOSEC [Concomitant]

REACTIONS (2)
  - GAIT DISTURBANCE [None]
  - GROIN PAIN [None]
